FAERS Safety Report 16351341 (Version 1)
Quarter: 2019Q2

REPORT INFORMATION
  Report Type: Report from Study
  Country: CA (occurrence: CA)
  Receive Date: 20190524
  Receipt Date: 20190524
  Transmission Date: 20190711
  Serious: Yes (Other)
  Sender: FDA-Public Use
  Company Number: CA-NALPROPION PHARMACEUTICALS INC.-2019-007356

PATIENT

DRUGS (6)
  1. TESTOSTERONE. [Concomitant]
     Active Substance: TESTOSTERONE
     Indication: BLOOD TESTOSTERONE FREE DECREASED
     Dosage: ROUTE INJECTION
     Route: 050
  2. CONTRAVE [Suspect]
     Active Substance: BUPROPION HYDROCHLORIDE\NALTREXONE HYDROCHLORIDE
     Dosage: 2 TAB Q AM, 2 TAB Q PM (2 DOSAGE FORMS,2 IN 1 D)
     Route: 048
     Dates: start: 20190414
  3. CONTRAVE [Suspect]
     Active Substance: BUPROPION HYDROCHLORIDE\NALTREXONE HYDROCHLORIDE
     Dosage: 1 TAB Q AM,1 TAB Q PM (1 DOSAGE FORMS,2 IN 1 D)
     Route: 048
     Dates: start: 20190331, end: 20190406
  4. CONTRAVE [Suspect]
     Active Substance: BUPROPION HYDROCHLORIDE\NALTREXONE HYDROCHLORIDE
     Indication: WEIGHT CONTROL
     Dosage: 1 TAB Q AM (1 DOSAGE FORMS,1 IN 1 D)
     Route: 048
     Dates: start: 20190324, end: 20190330
  5. CONTRAVE [Suspect]
     Active Substance: BUPROPION HYDROCHLORIDE\NALTREXONE HYDROCHLORIDE
     Dosage: 2 TAB Q AM, 1 TAB Q PM (2 IN 1 D)
     Route: 048
     Dates: start: 20190407, end: 20190413
  6. BASAL INSULIN [Concomitant]
     Active Substance: INSULIN HUMAN
     Indication: DIABETES MELLITUS
     Dosage: 30 UNIT, UNK
     Route: 058

REACTIONS (4)
  - Vomiting [Unknown]
  - Blood glucose decreased [Unknown]
  - Nausea [Unknown]
  - Muscle twitching [Unknown]

NARRATIVE: CASE EVENT DATE: 201903
